FAERS Safety Report 17591167 (Version 1)
Quarter: 2020Q1

REPORT INFORMATION
  Report Type: Spontaneous
  Country: US (occurrence: US)
  Receive Date: 20200327
  Receipt Date: 20200327
  Transmission Date: 20200409
  Serious: No
  Sender: FDA-Public Use
  Company Number: US-PFIZER INC-2020128719

PATIENT
  Age: 71 Year
  Sex: Male
  Weight: 77.11 kg

DRUGS (2)
  1. DILANTIN [Suspect]
     Active Substance: PHENYTOIN
     Indication: EPILEPSY
  2. PHENYTOIN. [Suspect]
     Active Substance: PHENYTOIN
     Indication: SEIZURE
     Dosage: UNK

REACTIONS (3)
  - Drug ineffective [Unknown]
  - Product dispensing error [Unknown]
  - Wrong product administered [Unknown]
